FAERS Safety Report 7806079-9 (Version None)
Quarter: 2011Q4

REPORT INFORMATION
  Report Type: 
  Country: None (occurrence: None)
  Receive Date: 20111011
  Receipt Date: 20111006
  Transmission Date: 20120403
  Serious: No
  Sender: FDA-Public Use
  Company Number: US-B.I. PHARMACEUTICALS,INC./RIDGEFIELD-2011-BP-23799BP

PATIENT
  Age: 70 Year
  Sex: Female

DRUGS (4)
  1. TRADJENTA [Suspect]
  2. NORVASC [Concomitant]
  3. AVAPRO [Concomitant]
  4. ULORIC [Concomitant]

REACTIONS (1)
  - OEDEMA PERIPHERAL [None]
